FAERS Safety Report 21923933 (Version 1)
Quarter: 2023Q1

REPORT INFORMATION
  Report Type: Spontaneous
  Country: DK (occurrence: DK)
  Receive Date: 20230130
  Receipt Date: 20230130
  Transmission Date: 20230417
  Serious: Yes (Hospitalization)
  Sender: FDA-Public Use
  Company Number: DK-NOVOPROD-1017025

PATIENT
  Age: 16 Year
  Sex: Female

DRUGS (5)
  1. LEVEMIR [Suspect]
     Active Substance: INSULIN DETEMIR
     Indication: Type 1 diabetes mellitus
     Dosage: 5 IU/H FOLLOWED BY 3.5 IU/H WHEN DIAGNOSED
     Route: 042
  2. LEVEMIR [Suspect]
     Active Substance: INSULIN DETEMIR
     Dosage: DAILY INSULIN DOSE WAS 0.8 IU/KG, OF WHICH 50% WAS GIVEN AS BASAL INSULIN (10 IE BID)
  3. LEVEMIR [Suspect]
     Active Substance: INSULIN DETEMIR
     Dosage: 18 IU, BID
  4. MELATONIN [Concomitant]
     Active Substance: MELATONIN
     Indication: Sleep disorder
     Dosage: UNK
  5. PROMETHAZINE [Concomitant]
     Active Substance: PROMETHAZINE HYDROCHLORIDE
     Indication: Sleep disorder

REACTIONS (1)
  - Diabetic neuropathy [Unknown]
